FAERS Safety Report 5256823-2 (Version None)
Quarter: 2007Q1

REPORT INFORMATION
  Report Type: 
  Country: None (occurrence: None)
  Receive Date: 20070306
  Receipt Date: 20070221
  Transmission Date: 20070707
  Serious: Yes (Hospitalization)
  Sender: FDA-Public Use
  Company Number: AT-ELI_LILLY_AND_COMPANY-AT200702004575

PATIENT
  Age: 16 Year
  Sex: Female
  Weight: 73.3 kg

DRUGS (2)
  1. STRATTERA [Suspect]
     Indication: ATTENTION DEFICIT/HYPERACTIVITY DISORDER
     Dosage: 72 MG, DAILY (1/D)
     Route: 048
     Dates: start: 20060821, end: 20061016
  2. TRUXAL [Concomitant]
     Indication: AGGRESSION
     Dosage: 150 MG, DAILY (1/D)
     Route: 048
     Dates: start: 20060824, end: 20061012

REACTIONS (3)
  - IMPULSE-CONTROL DISORDER [None]
  - RESTLESSNESS [None]
  - SLEEP DISORDER [None]
